FAERS Safety Report 5565123-2 (Version None)
Quarter: 2007Q4

REPORT INFORMATION
  Report Type: 
  Country: None (occurrence: None)
  Receive Date: 20071218
  Receipt Date: 20071217
  Transmission Date: 20080405
  Serious: Yes (Other)
  Sender: FDA-Public Use
  Company Number: GB-ASTRAZENECA-2007AC02426

PATIENT
  Age: 52 Year
  Sex: Female

DRUGS (1)
  1. TAMOXIFEN CITRATE [Suspect]
     Indication: BREAST CANCER
     Dates: start: 19961201

REACTIONS (4)
  - BIOPSY ENDOMETRIUM ABNORMAL [None]
  - UTERINE ENLARGEMENT [None]
  - UTERINE PROLAPSE [None]
  - VAGINAL HAEMORRHAGE [None]
